FAERS Safety Report 4973322-3 (Version None)
Quarter: 2006Q2

REPORT INFORMATION
  Report Type: 
  Country: None (occurrence: None)
  Receive Date: 20060414
  Receipt Date: 20060403
  Transmission Date: 20061013
  Serious: Yes (Hospitalization, Other)
  Sender: FDA-Public Use
  Company Number: US-MERCK-0604USA00491

PATIENT
  Age: 64 Year
  Sex: Female
  Weight: 70 kg

DRUGS (10)
  1. VIOXX [Suspect]
     Indication: ARTHRITIS
     Route: 048
     Dates: start: 20030821, end: 20040101
  2. TOPROL-XL [Concomitant]
     Route: 065
  3. FUROSEMIDE [Concomitant]
     Route: 065
  4. ISOSORBIDE MONONITRATE ER [Concomitant]
     Route: 065
  5. LISINOPRIL [Concomitant]
     Route: 065
     Dates: start: 20000101
  6. INDOCIN [Concomitant]
     Route: 065
  7. GLUCOPHAGE [Concomitant]
     Indication: DIABETES MELLITUS
     Route: 065
  8. ZOCOR [Concomitant]
     Indication: BLOOD CHOLESTEROL
     Route: 065
  9. CLONIDINE [Concomitant]
     Indication: CARDIAC DISORDER
     Route: 065
  10. PLAVIX [Concomitant]
     Route: 065

REACTIONS (7)
  - ANXIETY [None]
  - CARDIAC DISORDER [None]
  - CARDIAC FAILURE CONGESTIVE [None]
  - CORONARY ARTERY DISEASE [None]
  - CORONARY ARTERY STENOSIS [None]
  - DEPRESSION [None]
  - MYOCARDIAL INFARCTION [None]
